FAERS Safety Report 18512880 (Version 2)
Quarter: 2020Q4

REPORT INFORMATION
  Report Type: Spontaneous
  Country: PT (occurrence: PT)
  Receive Date: 20201117
  Receipt Date: 20201119
  Transmission Date: 20210114
  Serious: Yes (Other)
  Sender: FDA-Public Use
  Company Number: PT-009507513-2011PRT008041

PATIENT

DRUGS (1)
  1. CEFTOLOZANE SULFATE  (+) TAZOBACTAM SODIUM [Suspect]
     Active Substance: CEFTOLOZANE SULFATE\TAZOBACTAM SODIUM
     Indication: PNEUMONIA PSEUDOMONAL
     Dosage: UNK

REACTIONS (3)
  - Pathogen resistance [Unknown]
  - Hepatotoxicity [Unknown]
  - Bacterial infection [Unknown]
